FAERS Safety Report 8447052-X (Version None)
Quarter: 2012Q2

REPORT INFORMATION
  Report Type: 
  Country: None (occurrence: None)
  Receive Date: 20120619
  Receipt Date: 20120613
  Transmission Date: 20120825
  Serious: Yes (Other)
  Sender: FDA-Public Use
  Company Number: PHHY2012NL050850

PATIENT
  Age: 70 Year
  Sex: Female

DRUGS (2)
  1. NAPROXEN [Suspect]
     Indication: BONE PAIN
     Dosage: 500 MG, TID
  2. PREDNISONE [Suspect]
     Indication: ASTHMA
     Dosage: 15 MG, UNK

REACTIONS (9)
  - CUSHING'S SYNDROME [None]
  - LIPOHYPERTROPHY [None]
  - MUSCLE ATROPHY [None]
  - HYPOALDOSTERONISM [None]
  - HYPOTENSION [None]
  - SALT CRAVING [None]
  - MALAISE [None]
  - CUSHINGOID [None]
  - ADRENAL INSUFFICIENCY [None]
